FAERS Safety Report 5102866-9 (Version None)
Quarter: 2006Q3

REPORT INFORMATION
  Report Type: 
  Country: None (occurrence: None)
  Receive Date: 20060912
  Receipt Date: 20060906
  Transmission Date: 20061208
  Serious: Yes (Other)
  Sender: FDA-Public Use
  Company Number: PT-SANOFI-SYNTHELABO-A01200607346

PATIENT
  Sex: Female

DRUGS (1)
  1. ELOXATIN [Suspect]
     Dosage: UNK
     Route: 042

REACTIONS (3)
  - ASPHYXIA [None]
  - CHEST PAIN [None]
  - ERYTHEMA [None]
